FAERS Safety Report 13118481 (Version 2)
Quarter: 2017Q1

REPORT INFORMATION
  Report Type: Report from Study
  Country: KR (occurrence: KR)
  Receive Date: 20170116
  Receipt Date: 20170119
  Transmission Date: 20170428
  Serious: Yes (Death, Hospitalization)
  Sender: FDA-Public Use
  Company Number: KR-ASTRAZENECA-2016SF36879

PATIENT
  Age: 835 Month
  Sex: Female

DRUGS (5)
  1. AMLODIFINE [Concomitant]
     Indication: HYPERTENSION
     Dates: start: 19960101
  2. IR-CODON [Concomitant]
     Indication: PAIN
     Dates: start: 20140101
  3. BEECOM [Concomitant]
     Indication: VITAMIN SUPPLEMENTATION
     Dates: start: 19960101
  4. ASPIRIN. [Concomitant]
     Active Substance: ASPIRIN
     Indication: HYPERTENSION
     Dates: start: 19960101
  5. TAGRISSO [Suspect]
     Active Substance: OSIMERTINIB
     Indication: NON-SMALL CELL LUNG CANCER METASTATIC
     Route: 048
     Dates: start: 20160720, end: 20161223

REACTIONS (1)
  - Congestive cardiomyopathy [Fatal]

NARRATIVE: CASE EVENT DATE: 20161212
